FAERS Safety Report 23315536 (Version 1)
Quarter: 2023Q4

REPORT INFORMATION
  Report Type: Spontaneous
  Country: US (occurrence: US)
  Receive Date: 20231219
  Receipt Date: 20231219
  Transmission Date: 20240110
  Serious: Yes (Other)
  Sender: FDA-Public Use
  Company Number: US-ABBVIE-5532940

PATIENT

DRUGS (2)
  1. VENETOCLAX [Suspect]
     Active Substance: VENETOCLAX
     Indication: Product used for unknown indication
     Dosage: RAMP-UP TO 400 MG/DAY; 12 CYCLES
     Route: 048
  2. IBRUTINIB [Suspect]
     Active Substance: IBRUTINIB
     Indication: Product used for unknown indication
     Dosage: 3 CYCLES OF IBRUTINIB, THEN 12 CYCLES OF IBRUTINIB PLUS VENETOCLAX
     Route: 048

REACTIONS (1)
  - Prostate cancer [Unknown]
